FAERS Safety Report 5925359-5 (Version None)
Quarter: 2008Q3

REPORT INFORMATION
  Report Type: 
  Country: None (occurrence: None)
  Receive Date: 20080909
  Receipt Date: 20070913
  Transmission Date: 20090109
  Serious: Yes (Hospitalization)
  Sender: FDA-Public Use
  Company Number: 163-20785-07090694

PATIENT
  Age: 89 Year
  Sex: Female

DRUGS (1)
  1. THALOMID [Suspect]
     Indication: WALDENSTROM'S MACROGLOBULINAEMIA
     Dosage: 50 MG QD ORAL
     Route: 048
     Dates: start: 20070808

REACTIONS (4)
  - DIZZINESS [None]
  - HEADACHE [None]
  - HYPERSOMNIA [None]
  - HYPERTENSION [None]
